FAERS Safety Report 6017112-1 (Version None)
Quarter: 2008Q4

REPORT INFORMATION
  Report Type: 
  Country: None (occurrence: None)
  Receive Date: 20081223
  Receipt Date: 20081219
  Transmission Date: 20090506
  Serious: Yes (Hospitalization)
  Sender: FDA-Public Use
  Company Number: FR-ASTRAZENECA-2008CG01880

PATIENT
  Age: 974 Month
  Sex: Male

DRUGS (7)
  1. ZOLADEX [Suspect]
     Indication: PROSTATE CANCER
     Route: 058
  2. CASODEX [Suspect]
     Indication: PROSTATE CANCER
     Route: 048
  3. AMLOD [Concomitant]
     Route: 048
  4. CORENITEC [Concomitant]
  5. PREVISCAN [Concomitant]
  6. DIGOXIN [Concomitant]
  7. ZYLORIC [Concomitant]

REACTIONS (2)
  - ACUTE PULMONARY OEDEMA [None]
  - DYSPNOEA [None]
